FAERS Safety Report 13731484 (Version 1)
Quarter: 2017Q3

REPORT INFORMATION
  Report Type: Spontaneous
  Country: FR (occurrence: FR)
  Receive Date: 20170707
  Receipt Date: 20170707
  Transmission Date: 20171127
  Serious: Yes (Hospitalization)
  Sender: FDA-Public Use
  Company Number: FR-ELI_LILLY_AND_COMPANY-FR201707001385

PATIENT
  Age: 69 Year
  Sex: Male

DRUGS (4)
  1. FLUOROURACILE [Suspect]
     Active Substance: FLUOROURACIL
     Indication: METASTASES TO LUNG
     Dosage: UNK UNK, UNKNOWN
     Route: 042
     Dates: start: 20170322
  2. ERBITUX [Suspect]
     Active Substance: CETUXIMAB
     Indication: METASTASES TO LUNG
     Dosage: UNK UNK, UNKNOWN
     Route: 042
     Dates: start: 20170322
  3. NIVESTIM [Concomitant]
     Active Substance: FILGRASTIM
     Indication: PREMEDICATION
     Dosage: UNK
     Dates: start: 20170322
  4. CISPLATIN. [Suspect]
     Active Substance: CISPLATIN
     Indication: METASTASES TO LUNG
     Dosage: UNK UNK, UNKNOWN
     Route: 042
     Dates: start: 20170322

REACTIONS (3)
  - Renal impairment [Recovered/Resolved]
  - Hyponatraemia [Recovered/Resolved]
  - Hypokalaemia [Recovered/Resolved]

NARRATIVE: CASE EVENT DATE: 201703
